FAERS Safety Report 7511831-3 (Version None)
Quarter: 2011Q2

REPORT INFORMATION
  Report Type: 
  Country: None (occurrence: None)
  Receive Date: 20110531
  Receipt Date: 20110524
  Transmission Date: 20111010
  Serious: Yes (Hospitalization)
  Sender: FDA-Public Use
  Company Number: FR-PFIZER INC-2011114107

PATIENT
  Age: 73 Year
  Sex: Male

DRUGS (4)
  1. PREVISCAN [Suspect]
     Indication: ATRIAL FIBRILLATION
     Dosage: 20 MG DAILY
     Route: 048
     Dates: start: 20041201, end: 20060102
  2. BUMETANIDE [Suspect]
     Dosage: 1 MG DAILY
     Route: 048
     Dates: start: 20041201, end: 20060102
  3. CORDARONE [Suspect]
     Dosage: 200 MG,  5X/WEEK
     Route: 048
     Dates: start: 20041201, end: 20060102
  4. RAMIPRIL [Suspect]
     Dosage: 5 MG DAILY
     Route: 048
     Dates: start: 20041201, end: 20060102

REACTIONS (4)
  - TOXIC SKIN ERUPTION [None]
  - EOSINOPHILIA [None]
  - RENAL FAILURE [None]
  - NEPHROPATHY [None]
